FAERS Safety Report 16291232 (Version 1)
Quarter: 2019Q2

REPORT INFORMATION
  Report Type: Spontaneous
  Country: RU (occurrence: RU)
  Receive Date: 20190509
  Receipt Date: 20190509
  Transmission Date: 20190711
  Serious: Yes (Hospitalization, Other)
  Sender: FDA-Public Use
  Company Number: RU-AMNEAL PHARMACEUTICALS-2019AMN00548

PATIENT
  Age: 43 Year
  Sex: Male

DRUGS (1)
  1. METHOTREXATE. [Suspect]
     Active Substance: METHOTREXATE
     Indication: DERMATITIS ATOPIC
     Dosage: 10 MG WEEKLY
     Route: 065

REACTIONS (1)
  - Kaposi^s varicelliform eruption [Recovered/Resolved]
